FAERS Safety Report 24209853 (Version 2)
Quarter: 2024Q3

REPORT INFORMATION
  Report Type: Spontaneous
  Country: IN (occurrence: IN)
  Receive Date: 20240814
  Receipt Date: 20240827
  Transmission Date: 20241016
  Serious: Yes (Other)
  Sender: TORRENT
  Company Number: IN-TORRENT-00003633

PATIENT
  Age: 31 Year
  Sex: Male

DRUGS (1)
  1. LAMOTRIGINE [Suspect]
     Active Substance: LAMOTRIGINE
     Indication: Epilepsy
     Dosage: TWO TABLETS/DAY (MORNING + NIGHT)
     Route: 065

REACTIONS (3)
  - Epilepsy [Unknown]
  - Disease recurrence [Unknown]
  - Drug ineffective [Unknown]
